FAERS Safety Report 6102446-2 (Version None)
Quarter: 2009Q1

REPORT INFORMATION
  Report Type: 
  Country: None (occurrence: None)
  Receive Date: 20090304
  Receipt Date: 20090220
  Transmission Date: 20090719
  Serious: Yes (Hospitalization)
  Sender: FDA-Public Use
  Company Number: DE-ROCHE-609982

PATIENT
  Sex: Male
  Weight: 80 kg

DRUGS (6)
  1. PEG-INTERFERON ALFA 2A (RO 25-8310) [Suspect]
     Indication: HEPATITIS C
     Route: 058
     Dates: start: 20081212
  2. RIBAVIRIN [Suspect]
     Indication: HEPATITIS C
     Route: 048
     Dates: start: 20081212, end: 20090118
  3. RIBAVIRIN [Suspect]
     Route: 048
     Dates: start: 20090120
  4. BLINDED TELAPREVIR [Suspect]
     Indication: HEPATITIS C
     Route: 048
     Dates: start: 20081212, end: 20090117
  5. VOTUM [Concomitant]
     Dosage: DRUG: VOTURN, DOSAGE PLAN:1-0-0
  6. TAMSULOSIN HCL [Concomitant]
     Dosage: DRUG: TAMSULOSIN 0.4

REACTIONS (1)
  - GASTRITIS [None]
